FAERS Safety Report 10489368 (Version 2)
Quarter: 2014Q4

REPORT INFORMATION
  Report Type: Spontaneous
  Country: US (occurrence: US)
  Receive Date: 20141002
  Receipt Date: 20141031
  Transmission Date: 20150528
  Serious: Yes (Hospitalization, Disabling)
  Sender: FDA-Public Use
  Company Number: US-JNJFOC-20140925481

PATIENT
  Age: 21 Year
  Sex: Male
  Weight: 63 kg

DRUGS (6)
  1. METHOTREXATE [Concomitant]
     Active Substance: METHOTREXATE
     Indication: PSORIATIC ARTHROPATHY
     Route: 048
  2. TRIAMCINOLONE [Concomitant]
     Active Substance: TRIAMCINOLONE
     Indication: PSORIASIS
     Dosage: 0.5%
     Route: 061
  3. REMICADE [Suspect]
     Active Substance: INFLIXIMAB
     Indication: PSORIATIC ARTHROPATHY
     Route: 042
     Dates: start: 201206
  4. FOLIC ACID. [Concomitant]
     Active Substance: FOLIC ACID
     Indication: PSORIATIC ARTHROPATHY
     Route: 048
  5. REMICADE [Suspect]
     Active Substance: INFLIXIMAB
     Indication: PSORIATIC ARTHROPATHY
     Route: 042
     Dates: start: 20140905, end: 20140905
  6. INDOMETHACIN. [Concomitant]
     Active Substance: INDOMETHACIN
     Indication: PSORIATIC ARTHROPATHY
     Route: 065
     Dates: end: 20140919

REACTIONS (1)
  - Lupus-like syndrome [Recovering/Resolving]

NARRATIVE: CASE EVENT DATE: 20140914
